FAERS Safety Report 26113242 (Version 2)
Quarter: 2025Q4

REPORT INFORMATION
  Report Type: Report from Study
  Country: CA (occurrence: CA)
  Receive Date: 20251202
  Receipt Date: 20251205
  Transmission Date: 20260118
  Serious: Yes (Other)
  Sender: ABBVIE
  Company Number: CA-ABBVIE-6570344

PATIENT
  Sex: Female

DRUGS (1)
  1. RINVOQ [Suspect]
     Active Substance: UPADACITINIB
     Indication: Colitis ulcerative
     Dosage: FORM STRENGTH- 30 MILLIGRAM
     Route: 048

REACTIONS (3)
  - Neoplasm progression [Unknown]
  - Gastrointestinal erosion [Recovering/Resolving]
  - Mucosal inflammation [Unknown]
